FAERS Safety Report 9236519 (Version 2)
Quarter: 2013Q2

REPORT INFORMATION
  Report Type: Report from Study
  Country: IL (occurrence: IL)
  Receive Date: 20130417
  Receipt Date: 20130424
  Transmission Date: 20140414
  Serious: Yes (Hospitalization)
  Sender: FDA-Public Use
  Company Number: IL-ROCHE-1214460

PATIENT
  Age: 63 Year
  Sex: Female

DRUGS (4)
  1. PEG-INTERFERON ALFA 2A [Suspect]
     Indication: HEPATITIS C
     Route: 058
     Dates: start: 20121120
  2. RIBAVIRIN [Suspect]
     Indication: HEPATITIS C
     Dosage: 2 TABLET, 3 TABLET
     Route: 048
     Dates: start: 20121120
  3. RIBAVIRIN [Suspect]
     Dosage: 1 TABLET PLUS 2 TABLETS
     Route: 048
  4. TELAPREVIR [Suspect]
     Indication: HEPATITIS C
     Route: 048
     Dates: start: 20121120, end: 20130212

REACTIONS (2)
  - Renal failure [Recovered/Resolved]
  - Anaemia [Recovered/Resolved]
